FAERS Safety Report 9056458 (Version 1)
Quarter: 2013Q1

REPORT INFORMATION
  Report Type: Report from Study
  Country: DE (occurrence: DE)
  Receive Date: 20130204
  Receipt Date: 20130204
  Transmission Date: 20140127
  Serious: Yes (Hospitalization)
  Sender: FDA-Public Use
  Company Number: DE-BAXTER-2013BAX003501

PATIENT
  Age: 72 Year
  Sex: Male
  Weight: 72 kg

DRUGS (2)
  1. ADVATE  250 I.E. [Suspect]
     Indication: FACTOR VIII DEFICIENCY
     Route: 042
  2. ADVATE  250 I.E. [Suspect]
     Indication: PROPHYLAXIS

REACTIONS (2)
  - Femoral neck fracture [Recovered/Resolved]
  - Fall [Recovered/Resolved]
